FAERS Safety Report 4959280-6 (Version None)
Quarter: 2006Q1

REPORT INFORMATION
  Report Type: 
  Country: None (occurrence: None)
  Receive Date: 20060331
  Receipt Date: 20060322
  Transmission Date: 20060701
  Serious: Yes (Other)
  Sender: FDA-Public Use
  Company Number: US-JNJFOC-20060305629

PATIENT
  Sex: Male
  Weight: 70.31 kg

DRUGS (4)
  1. REMICADE [Suspect]
     Indication: RHEUMATOID ARTHRITIS
     Dosage: START DATE: SEVERAL YEARS
     Route: 042
  2. METHOTREXATE [Concomitant]
  3. NAPROSYN [Concomitant]
     Dosage: STARTED BEFORE INFLIXIMAB
  4. FOLIC ACID [Concomitant]

REACTIONS (2)
  - HAEMOGLOBIN INCREASED [None]
  - RED BLOOD CELL COUNT INCREASED [None]
